FAERS Safety Report 4946597-4 (Version None)
Quarter: 2006Q1

REPORT INFORMATION
  Report Type: 
  Country: None (occurrence: None)
  Receive Date: 20060317
  Receipt Date: 20060315
  Transmission Date: 20060701
  Serious: Yes (Hospitalization)
  Sender: FDA-Public Use
  Company Number: FR-GLAXOSMITHKLINE-B0415983A

PATIENT
  Age: 47 Year
  Sex: Male

DRUGS (3)
  1. CLAMOXYL [Suspect]
     Indication: TOOTH INFECTION
     Route: 048
  2. NIFLURIL [Suspect]
     Indication: DENTAL CARE
     Route: 048
  3. PARACETAMOL [Concomitant]
     Indication: DENTAL CARE
     Route: 048

REACTIONS (2)
  - ABDOMINAL DISTENSION [None]
  - ABDOMINAL PAIN [None]
